FAERS Safety Report 8917277 (Version 1)
Quarter: 2012Q4

REPORT INFORMATION
  Report Type: 
  Country: GB (occurrence: GB)
  Receive Date: 20121120
  Receipt Date: 20121120
  Transmission Date: 20130627
  Serious: Yes (Other)
  Sender: FDA-Public Use
  Company Number: GB-ABBOTT-12P-167-1009695-00

PATIENT
  Age: 27 Year
  Sex: Female
  Weight: 74 kg

DRUGS (5)
  1. HUMIRA [Suspect]
     Indication: CROHN^S DISEASE
     Route: 058
     Dates: start: 201004
  2. PREDNISOLONE [Concomitant]
     Indication: PRODUCT USED FOR UNKNOWN INDICATION
     Dosage: Reducing dose 5mg
     Route: 048
  3. PARACETAMOL [Concomitant]
     Indication: PRODUCT USED FOR UNKNOWN INDICATION
  4. CLEXANE [Concomitant]
     Indication: PRODUCT USED FOR UNKNOWN INDICATION
     Dosage: Discontinued whilst in patient
     Route: 058
     Dates: end: 20120810
  5. B12 [Concomitant]
     Indication: CROHN^S DISEASE
     Route: 030

REACTIONS (2)
  - Bradycardia [Unknown]
  - Maternal exposure during pregnancy [None]
